FAERS Safety Report 23531284 (Version 1)
Quarter: 2024Q1

REPORT INFORMATION
  Report Type: Spontaneous
  Country: US (occurrence: None)
  Receive Date: 20240216
  Receipt Date: 20240216
  Transmission Date: 20240410
  Serious: Yes (Hospitalization, Other)
  Sender: FDA-Public Use
  Company Number: 2024A034953

PATIENT

DRUGS (1)
  1. BYDUREON BCISE [Suspect]
     Active Substance: EXENATIDE

REACTIONS (10)
  - Blindness unilateral [Unknown]
  - Eye haemorrhage [Unknown]
  - Scar [Unknown]
  - Hydrocephalus [Unknown]
  - Vision blurred [Unknown]
  - Cerebral disorder [Unknown]
  - Injection site nodule [Unknown]
  - Fall [Unknown]
  - Product dose omission issue [Unknown]
  - Wrong technique in device usage process [Unknown]
